FAERS Safety Report 21839209 (Version 1)
Quarter: 2023Q1

REPORT INFORMATION
  Report Type: Spontaneous
  Country: US (occurrence: None)
  Receive Date: 20230107
  Receipt Date: 20230107
  Transmission Date: 20230418
  Serious: No
  Sender: FDA-Public Use
  Company Number: None

PATIENT
  Age: 42 Year
  Sex: Male
  Weight: 73 kg

DRUGS (1)
  1. HYDROXYZINE HYDROCHLORIDE [Suspect]
     Active Substance: HYDROXYZINE HYDROCHLORIDE
     Dosage: 50 MG PRN PO?
     Route: 048
     Dates: start: 20220311, end: 20220511

REACTIONS (4)
  - Abnormal behaviour [None]
  - Homicidal ideation [None]
  - Suicidal ideation [None]
  - Delirium [None]
